FAERS Safety Report 15933960 (Version 1)
Quarter: 2019Q1

REPORT INFORMATION
  Report Type: Spontaneous
  Country: GB (occurrence: AT)
  Receive Date: 20190207
  Receipt Date: 20190207
  Transmission Date: 20190417
  Serious: Yes (Death, Other)
  Sender: FDA-Public Use
  Company Number: AT-FRESENIUS KABI-FK201901134

PATIENT
  Age: 68 Year
  Sex: Female

DRUGS (6)
  1. TELBERMIN [Suspect]
     Active Substance: TELBERMIN
     Indication: ADENOCARCINOMA OF COLON
     Route: 065
  2. LEUCOVORIN CALCIUM (MANUFACTURER UNKNOWN) [Suspect]
     Active Substance: LEUCOVORIN CALCIUM
     Indication: ADENOCARCINOMA OF COLON
     Route: 065
  3. IRINOTECAN (MANUFACTURER UNKNOWN) [Suspect]
     Active Substance: IRINOTECAN
     Indication: ADENOCARCINOMA OF COLON
     Route: 065
  4. FLUOROURACIL. [Suspect]
     Active Substance: FLUOROURACIL
     Indication: ADENOCARCINOMA OF COLON
     Route: 065
  5. CETUXIMAB. [Suspect]
     Active Substance: CETUXIMAB
     Indication: ADENOCARCINOMA OF COLON
     Route: 065
  6. OXALIPLATIN (MANUFACTURER UNKNOWN) [Suspect]
     Active Substance: OXALIPLATIN
     Indication: ADENOCARCINOMA OF COLON
     Route: 065

REACTIONS (12)
  - Liver disorder [Unknown]
  - Subclavian vein thrombosis [None]
  - Diarrhoea [Unknown]
  - Jugular vein thrombosis [None]
  - Malignant neoplasm progression [Fatal]
  - Gastroenteritis norovirus [None]
  - Adenocarcinoma of colon [Fatal]
  - Viral infection [Unknown]
  - Deep vein thrombosis [Unknown]
  - Neutropenia [Unknown]
  - Therapy partial responder [Unknown]
  - Brachiocephalic vein thrombosis [None]

NARRATIVE: CASE EVENT DATE: 201703
